FAERS Safety Report 8418750 (Version 3)
Quarter: 2013Q1

REPORT INFORMATION
  Report Type: Report from Study
  Country: US (occurrence: US)
  Receive Date: 20120221
  Receipt Date: 20130201
  Transmission Date: 20140127
  Serious: Yes (Hospitalization, Other)
  Sender: FDA-Public Use
  Company Number: US-ABBOTT-12P-163-0904796-00

PATIENT
  Age: 32 Year
  Sex: Male

DRUGS (5)
  1. HUMIRA 40 MG/0.8 ML PEN [Suspect]
     Indication: CROHN^S DISEASE
     Dates: start: 20111230, end: 20111230
  2. HUMIRA 40 MG/0.8 ML PEN [Suspect]
     Dates: start: 20120113, end: 20120113
  3. HUMIRA 40 MG/0.8 ML PEN [Suspect]
     Dates: end: 20120125
  4. DONNATAL [Concomitant]
     Indication: PRODUCT USED FOR UNKNOWN INDICATION
  5. NORCO [Concomitant]
     Indication: PRODUCT USED FOR UNKNOWN INDICATION

REACTIONS (16)
  - Hypotension [Unknown]
  - Sepsis [Unknown]
  - Abdominal pain [Unknown]
  - Malaise [Unknown]
  - Pharyngitis streptococcal [Recovered/Resolved]
  - Ileal fistula [Recovered/Resolved]
  - Intestinal fistula [Recovered/Resolved]
  - Faecal incontinence [Recovered/Resolved]
  - Intestinal perforation [Recovered/Resolved]
  - Sepsis [Recovered/Resolved]
  - Fungal infection [Recovered/Resolved]
  - Enterocutaneous fistula [Not Recovered/Not Resolved]
  - Impaired healing [Not Recovered/Not Resolved]
  - Incisional hernia repair [Recovered/Resolved]
  - Enterocutaneous fistula [Not Recovered/Not Resolved]
  - Abscess intestinal [Recovered/Resolved]
